FAERS Safety Report 6864933-9 (Version None)
Quarter: 2010Q3

REPORT INFORMATION
  Report Type: 
  Country: None (occurrence: None)
  Receive Date: 20100720
  Receipt Date: 20100707
  Transmission Date: 20110219
  Serious: Yes (Hospitalization)
  Sender: FDA-Public Use
  Company Number: 2010SP037917

PATIENT
  Age: 21 Year
  Sex: Female
  Weight: 46 kg

DRUGS (18)
  1. REMERON [Suspect]
     Indication: DEPRESSION
     Dosage: 15 MG;PO, 7.5 MG;PO, 15 MG;PO, 15 MG;PO
     Route: 048
     Dates: start: 20091118, end: 20091122
  2. REMERON [Suspect]
     Indication: DEPRESSION
     Dosage: 15 MG;PO, 7.5 MG;PO, 15 MG;PO, 15 MG;PO
     Route: 048
     Dates: start: 20091123, end: 20091123
  3. REMERON [Suspect]
     Indication: DEPRESSION
     Dosage: 15 MG;PO, 7.5 MG;PO, 15 MG;PO, 15 MG;PO
     Route: 048
     Dates: start: 20091124, end: 20091207
  4. REMERON [Suspect]
     Indication: DEPRESSION
     Dosage: 15 MG;PO, 7.5 MG;PO, 15 MG;PO, 15 MG;PO
     Route: 048
     Dates: start: 20091219, end: 20091220
  5. EFFEXOR [Suspect]
     Indication: DEPRESSION
     Dosage: 15 MG;PO, 75 MG; PO, 150 MG;PO
     Route: 048
     Dates: start: 20091120, end: 20091122
  6. EFFEXOR [Suspect]
     Indication: DEPRESSION
     Dosage: 15 MG;PO, 75 MG; PO, 150 MG;PO
     Route: 048
     Dates: start: 20091123, end: 20091203
  7. EFFEXOR [Suspect]
     Indication: DEPRESSION
     Dosage: 15 MG;PO, 75 MG; PO, 150 MG;PO
     Route: 048
     Dates: start: 20091204, end: 20091208
  8. SEROQUEL [Suspect]
     Indication: PRODUCT USED FOR UNKNOWN INDICATION
     Dates: start: 20091208, end: 20091216
  9. CYMBALTA [Suspect]
     Indication: PRODUCT USED FOR UNKNOWN INDICATION
     Dates: start: 20091209, end: 20091214
  10. ZOLOFT [Suspect]
     Indication: PRODUCT USED FOR UNKNOWN INDICATION
     Dosage: 50 MG
     Dates: start: 20091219, end: 20091220
  11. LORAZEPAM [Suspect]
     Indication: PRODUCT USED FOR UNKNOWN INDICATION
     Dosage: 4 MG; 3 MG; 2.5 MG; 2 MG; 1.5 MG; 1 MG; 0.5 MG
     Dates: start: 20091219, end: 20091220
  12. LORAZEPAM [Suspect]
     Indication: PRODUCT USED FOR UNKNOWN INDICATION
     Dosage: 4 MG; 3 MG; 2.5 MG; 2 MG; 1.5 MG; 1 MG; 0.5 MG
     Dates: start: 20091221, end: 20091227
  13. LORAZEPAM [Suspect]
     Indication: PRODUCT USED FOR UNKNOWN INDICATION
     Dosage: 4 MG; 3 MG; 2.5 MG; 2 MG; 1.5 MG; 1 MG; 0.5 MG
     Dates: start: 20091228, end: 20100103
  14. LORAZEPAM [Suspect]
     Indication: PRODUCT USED FOR UNKNOWN INDICATION
     Dosage: 4 MG; 3 MG; 2.5 MG; 2 MG; 1.5 MG; 1 MG; 0.5 MG
     Dates: start: 20100104, end: 20100105
  15. LORAZEPAM [Suspect]
     Indication: PRODUCT USED FOR UNKNOWN INDICATION
     Dosage: 4 MG; 3 MG; 2.5 MG; 2 MG; 1.5 MG; 1 MG; 0.5 MG
     Dates: start: 20100106, end: 20100107
  16. LORAZEPAM [Suspect]
     Indication: PRODUCT USED FOR UNKNOWN INDICATION
     Dosage: 4 MG; 3 MG; 2.5 MG; 2 MG; 1.5 MG; 1 MG; 0.5 MG
     Dates: start: 20100108, end: 20100109
  17. LORAZEPAM [Suspect]
     Indication: PRODUCT USED FOR UNKNOWN INDICATION
     Dosage: 4 MG; 3 MG; 2.5 MG; 2 MG; 1.5 MG; 1 MG; 0.5 MG
     Dates: start: 20100110, end: 20100111
  18. OLFEN [Concomitant]

REACTIONS (12)
  - DIARRHOEA [None]
  - DIZZINESS POSTURAL [None]
  - DYSPNOEA AT REST [None]
  - ERYTHEMA [None]
  - EYE SWELLING [None]
  - HYPOPHAGIA [None]
  - NAUSEA [None]
  - PALPITATIONS [None]
  - RESTLESSNESS [None]
  - SINUS TACHYCARDIA [None]
  - SOMATOFORM DISORDER [None]
  - SUICIDAL IDEATION [None]
